FAERS Safety Report 10199724 (Version 1)
Quarter: 2014Q2

REPORT INFORMATION
  Report Type: Spontaneous
  Country: US (occurrence: US)
  Receive Date: 20140527
  Receipt Date: 20140527
  Transmission Date: 20141212
  Serious: No
  Sender: FDA-Public Use
  Company Number: US-NOVEN-14US008877

PATIENT
  Sex: Male

DRUGS (1)
  1. DAYTRANA [Suspect]
     Indication: ACCIDENTAL EXPOSURE TO PRODUCT
     Dosage: 10 MG, UNK
     Route: 062

REACTIONS (2)
  - Accidental exposure to product [Not Recovered/Not Resolved]
  - No adverse event [None]
